FAERS Safety Report 8905407 (Version 1)
Quarter: 2012Q4

REPORT INFORMATION
  Report Type: 
  Country: GB (occurrence: GB)
  Receive Date: 20121111
  Receipt Date: 20121111
  Transmission Date: 20130627
  Serious: No
  Sender: FDA-Public Use
  Company Number: PHFR2012GB005436

PATIENT
  Sex: Female
  Weight: 76 kg

DRUGS (5)
  1. NILOTINIB [Suspect]
     Indication: CHRONIC MYELOID LEUKAEMIA
     Dosage: 400 mg, UNK
     Route: 048
  2. SERETIDE [Concomitant]
  3. VENTOLIN [Concomitant]
  4. AMLODIPINE [Concomitant]
     Route: 048
  5. ARIMIDEX [Concomitant]
     Route: 048

REACTIONS (2)
  - Dyspnoea exertional [Recovered/Resolved with Sequelae]
  - Drug ineffective [Unknown]
